FAERS Safety Report 5635765-4 (Version None)
Quarter: 2008Q1

REPORT INFORMATION
  Report Type: 
  Country: None (occurrence: None)
  Receive Date: 20080220
  Receipt Date: 20080207
  Transmission Date: 20080703
  Serious: Yes (Life-Threatening, Hospitalization, Other)
  Sender: FDA-Public Use
  Company Number: 100#08#2008-00660

PATIENT
  Age: 24 Year
  Sex: Female

DRUGS (3)
  1. ISOPTIN [Suspect]
     Indication: DRUG USE FOR UNKNOWN INDICATION
  2. PROPRANOLOL [Suspect]
     Indication: DRUG USE FOR UNKNOWN INDICATION
  3. ENARENAL (ENALAPRIL) [Suspect]
     Indication: DRUG USE FOR UNKNOWN INDICATION

REACTIONS (13)
  - BRADYCARDIA [None]
  - CARDIAC ARREST [None]
  - CARDIAC MURMUR [None]
  - COUGH [None]
  - CREPITATIONS [None]
  - DRUG TOXICITY [None]
  - HYPERTONIA [None]
  - HYPOTONIA [None]
  - PULMONARY OEDEMA [None]
  - RESPIRATORY FAILURE [None]
  - SHOCK [None]
  - VENTRICULAR EXTRASYSTOLES [None]
  - VENTRICULAR FIBRILLATION [None]
